FAERS Safety Report 10928860 (Version 2)
Quarter: 2015Q2

REPORT INFORMATION
  Report Type: Spontaneous
  Country: US (occurrence: US)
  Receive Date: 20150319
  Receipt Date: 20150524
  Transmission Date: 20150821
  Serious: No
  Sender: FDA-Public Use
  Company Number: US-JNJFOC-20130904571

PATIENT
  Sex: Female

DRUGS (2)
  1. CONCERTA [Suspect]
     Active Substance: METHYLPHENIDATE HYDROCHLORIDE
     Indication: ATTENTION DEFICIT/HYPERACTIVITY DISORDER
     Dosage: TWO 36 MG TABLETS; ADMINSTERS THE MEDICATION AT 06:30 AM
     Route: 048
     Dates: start: 2004
  2. METHYLPHENIATE HYDROCHLORIDE (WATSON) [Suspect]
     Active Substance: METHYLPHENIDATE HYDROCHLORIDE
     Indication: ATTENTION DEFICIT/HYPERACTIVITY DISORDER
     Dosage: TWO 36 MG TABLETS
     Route: 048

REACTIONS (1)
  - Drug effect decreased [Not Recovered/Not Resolved]
